FAERS Safety Report 7121957-4 (Version None)
Quarter: 2010Q4

REPORT INFORMATION
  Report Type: 
  Country: None (occurrence: None)
  Receive Date: 20101124
  Receipt Date: 20101116
  Transmission Date: 20110411
  Serious: Yes (Hospitalization)
  Sender: FDA-Public Use
  Company Number: A0774401A

PATIENT
  Age: 34 Year
  Sex: Male
  Weight: 125 kg

DRUGS (6)
  1. AVANDIA [Suspect]
     Dosage: 2MG TWICE PER DAY
     Route: 048
     Dates: start: 20010101, end: 20061201
  2. GLUCOPHAGE [Concomitant]
     Dates: start: 20010101, end: 20070101
  3. METFORMIN [Concomitant]
     Dates: start: 20010101, end: 20030101
  4. NPH INSULIN [Concomitant]
  5. LANTUS [Concomitant]
  6. DIABETA [Concomitant]
     Dates: start: 20030101, end: 20050101

REACTIONS (3)
  - ANGINA UNSTABLE [None]
  - ARTERIOSCLEROSIS CORONARY ARTERY [None]
  - MYOCARDIAL INFARCTION [None]
